FAERS Safety Report 6250765-1 (Version None)
Quarter: 2009Q2

REPORT INFORMATION
  Report Type: 
  Country: None (occurrence: None)
  Receive Date: 20090630
  Receipt Date: 20081020
  Transmission Date: 20091009
  Serious: No
  Sender: FDA-Public Use
  Company Number: US-ABBOTT-08P-163-0483607-00

PATIENT
  Age: 50 Year
  Sex: Male

DRUGS (2)
  1. ZEMPLAR [Suspect]
     Indication: HYPERPARATHYROIDISM
     Dates: end: 20080901
  2. KIDNEY WELL [Concomitant]
     Indication: PHYTOTHERAPY

REACTIONS (1)
  - BLOOD CREATININE INCREASED [None]
